FAERS Safety Report 5687952-7 (Version None)
Quarter: 2008Q1

REPORT INFORMATION
  Report Type: 
  Country: None (occurrence: None)
  Receive Date: 20080328
  Receipt Date: 20061025
  Transmission Date: 20080703
  Serious: Yes (Other)
  Sender: FDA-Public Use
  Company Number: US-BAYER-US-2006-013443

PATIENT
  Age: 38 Year
  Sex: Female
  Weight: 85 kg

DRUGS (2)
  1. MIRENA [Suspect]
     Indication: CONTRACEPTION
     Route: 015
     Dates: start: 20060209, end: 20060327
  2. DESOGEN ^CIBA-GEIGY^ [Concomitant]
     Indication: ORAL CONTRACEPTION
     Dates: start: 20000801

REACTIONS (1)
  - VAGINITIS BACTERIAL [None]
